FAERS Safety Report 15591194 (Version 1)
Quarter: 2018Q4

REPORT INFORMATION
  Report Type: Spontaneous
  Country: US (occurrence: US)
  Receive Date: 20181106
  Receipt Date: 20181106
  Transmission Date: 20190205
  Serious: No
  Sender: FDA-Public Use
  Company Number: US-PFIZER INC-2018442827

PATIENT

DRUGS (1)
  1. NEURONTIN [Suspect]
     Active Substance: GABAPENTIN
     Dosage: UNK

REACTIONS (6)
  - Musculoskeletal disorder [Unknown]
  - Sensation of foreign body [Unknown]
  - Drug ineffective [Unknown]
  - Pain [Unknown]
  - Somnolence [Unknown]
  - Hypoaesthesia [Unknown]
